FAERS Safety Report 4504687-4 (Version None)
Quarter: 2004Q3

REPORT INFORMATION
  Report Type: 
  Country: None (occurrence: None)
  Receive Date: 20040927
  Receipt Date: 20040719
  Transmission Date: 20050211
  Serious: No
  Sender: FDA-Public Use
  Company Number: USA040773070

PATIENT
  Age: 43 Year
  Sex: Male
  Weight: 93 kg

DRUGS (6)
  1. STRATTERA [Suspect]
     Indication: ATTENTION DEFICIT/HYPERACTIVITY DISORDER
     Dosage: 60 MG/2 DAY
     Dates: start: 20040401, end: 20040701
  2. DEXEDRINE (DEXAMFETAMINE SULFATE) [Concomitant]
  3. ESCITALOPRAM OXALATE [Concomitant]
  4. WELLBUTRIN SR [Concomitant]
  5. AMBIEN [Concomitant]
  6. NEXIUM [Concomitant]

REACTIONS (3)
  - MUSCLE CRAMP [None]
  - MYALGIA [None]
  - PRESCRIBED OVERDOSE [None]
